FAERS Safety Report 5475655-3 (Version None)
Quarter: 2007Q4

REPORT INFORMATION
  Report Type: 
  Country: None (occurrence: None)
  Receive Date: 20071001
  Receipt Date: 20070920
  Transmission Date: 20080405
  Serious: Yes (Hospitalization, Other)
  Sender: FDA-Public Use
  Company Number: 2007BI020107

PATIENT
  Age: 65 Year
  Sex: Male

DRUGS (1)
  1. AVONEX [Suspect]
     Indication: MULTIPLE SCLEROSIS
     Dosage: 30 UG QW IM
     Route: 030
     Dates: start: 19961001

REACTIONS (4)
  - DEHYDRATION [None]
  - HYPOTENSION [None]
  - PNEUMONIA [None]
  - RENAL FAILURE [None]
